FAERS Safety Report 5931871-5 (Version None)
Quarter: 2008Q4

REPORT INFORMATION
  Report Type: 
  Country: None (occurrence: None)
  Receive Date: 20081027
  Receipt Date: 20081015
  Transmission Date: 20090506
  Serious: Yes (Hospitalization)
  Sender: FDA-Public Use
  Company Number: JP-PFIZER INC-2008085539

PATIENT
  Age: 52 Year
  Sex: Male

DRUGS (2)
  1. NIFEDIPINE [Suspect]
     Dosage: DAILY DOSE:40MG
  2. OLMETEC [Suspect]
     Dosage: DAILY DOSE:40MG

REACTIONS (2)
  - CARDIAC AUTONOMIC NEUROPATHY [None]
  - DYSPNOEA EXERTIONAL [None]
